FAERS Safety Report 20830010 (Version 1)
Quarter: 2022Q2

REPORT INFORMATION
  Report Type: Spontaneous
  Country: BR (occurrence: BR)
  Receive Date: 20220514
  Receipt Date: 20220514
  Transmission Date: 20220721
  Serious: Yes (Death, Other)
  Sender: FDA-Public Use
  Company Number: BR-AMGEN-BRASP2022078218

PATIENT

DRUGS (2)
  1. FILGRASTIM [Suspect]
     Active Substance: FILGRASTIM
     Indication: Hyper IgM syndrome
     Dosage: UNK
     Route: 065
  2. FILGRASTIM [Suspect]
     Active Substance: FILGRASTIM
     Indication: Off label use

REACTIONS (12)
  - Death [Fatal]
  - Sepsis [Fatal]
  - Graft versus host disease [Unknown]
  - Cytomegalovirus infection [Unknown]
  - Neutropenia [Unknown]
  - Hepatic vein occlusion [Unknown]
  - Infection [Unknown]
  - Mucosal inflammation [Unknown]
  - Visual acuity reduced [Unknown]
  - Malnutrition [Unknown]
  - Off label use [Unknown]
  - Diarrhoea [Unknown]
